FAERS Safety Report 5520107-5 (Version None)
Quarter: 2007Q4

REPORT INFORMATION
  Report Type: 
  Country: None (occurrence: None)
  Receive Date: 20071116
  Receipt Date: 20071108
  Transmission Date: 20080405
  Serious: Yes (Hospitalization)
  Sender: FDA-Public Use
  Company Number: PHHO2003DK11722

PATIENT
  Age: 93 Year
  Sex: Female
  Weight: 47 kg

DRUGS (6)
  1. VITAMIN D [Concomitant]
     Indication: OSTEOPOROTIC FRACTURE
     Dosage: 400 IU, BID
     Route: 048
  2. CALCIUM CARBONATE [Concomitant]
     Indication: OSTEOPOROTIC FRACTURE
     Dosage: 500 MG, BID
     Route: 048
  3. FUREX [Concomitant]
     Dosage: 40 MG, BID
     Route: 048
  4. IMOZOP [Concomitant]
     Indication: INSOMNIA
     Dosage: 7.5 MG/DAY
     Route: 048
  5. ZOLEDRONIC ACID [Suspect]
     Indication: OSTEOPOROTIC FRACTURE
     Dosage: DOUBLE BLIND
     Route: 042
     Dates: start: 20030828
  6. ZOLEDRONIC ACID [Suspect]
     Dosage: 5 MG, ONCE YEARLY

REACTIONS (1)
  - DIZZINESS [None]
